FAERS Safety Report 18299378 (Version 2)
Quarter: 2020Q4

REPORT INFORMATION
  Report Type: Spontaneous
  Country: BG (occurrence: BG)
  Receive Date: 20200922
  Receipt Date: 20201008
  Transmission Date: 20210113
  Serious: Yes (Death, Hospitalization)
  Sender: FDA-Public Use
  Company Number: BG-INCYTE CORPORATION-2020IN006964

PATIENT

DRUGS (1)
  1. JAKAVI [Suspect]
     Active Substance: RUXOLITINIB
     Indication: MYELOFIBROSIS
     Dosage: 10 MG, QD
     Route: 048
     Dates: start: 20180104, end: 20200910

REACTIONS (10)
  - C-reactive protein increased [Recovering/Resolving]
  - Acute kidney injury [Fatal]
  - Blood creatinine increased [Recovering/Resolving]
  - Lymphopenia [Recovering/Resolving]
  - Thrombocytopenia [Recovering/Resolving]
  - Blood alkaline phosphatase increased [Recovering/Resolving]
  - Leukocytosis [Recovering/Resolving]
  - General physical health deterioration [Unknown]
  - Anuria [Unknown]
  - Anaemia [Recovering/Resolving]

NARRATIVE: CASE EVENT DATE: 20200702
